FAERS Safety Report 6216025-X (Version None)
Quarter: 2009Q2

REPORT INFORMATION
  Report Type: 
  Country: None (occurrence: None)
  Receive Date: 20090605
  Receipt Date: 20090523
  Transmission Date: 20091009
  Serious: Yes (Other)
  Sender: FDA-Public Use
  Company Number: PHHY2009BR21770

PATIENT
  Age: 7 Year
  Sex: Female

DRUGS (1)
  1. RITALIN [Suspect]
     Dosage: 10 MG, UNK

REACTIONS (2)
  - CYANOSIS [None]
  - THROMBOCYTOPENIA [None]
